FAERS Safety Report 26047186 (Version 2)
Quarter: 2025Q4

REPORT INFORMATION
  Report Type: Spontaneous
  Country: JP (occurrence: JP)
  Receive Date: 20251114
  Receipt Date: 20251124
  Transmission Date: 20260118
  Serious: No
  Sender: EISAI
  Company Number: JP-Eisai-202510166_DVG_P_1

PATIENT
  Sex: Female

DRUGS (2)
  1. DAYVIGO [Suspect]
     Active Substance: LEMBOREXANT
     Indication: Insomnia
     Route: 048
  2. DAYVIGO [Suspect]
     Active Substance: LEMBOREXANT
     Route: 048

REACTIONS (1)
  - Somnolence [Unknown]
